FAERS Safety Report 6797470-0 (Version None)
Quarter: 2010Q2

REPORT INFORMATION
  Report Type: 
  Country: None (occurrence: None)
  Receive Date: 20100623
  Receipt Date: 20100615
  Transmission Date: 20101027
  Serious: Yes (Other)
  Sender: FDA-Public Use
  Company Number: DSA_43294_2010

PATIENT
  Age: 75 Year
  Sex: Female

DRUGS (1)
  1. TIAZAC XC (TIAZAC XC-DILTIAZEM HYDROCHLORIDE) (NOT SPECIFIED) [Suspect]
     Indication: DRUG USE FOR UNKNOWN INDICATION
     Dosage: 120 MG QD ORAL   6 DAYS
     Route: 048

REACTIONS (6)
  - EYE PAIN [None]
  - EYE ROLLING [None]
  - EYELID PAIN [None]
  - HYPERTENSION [None]
  - PANCREATITIS [None]
  - PRODUCT SUBSTITUTION ISSUE [None]
